FAERS Safety Report 17227653 (Version 4)
Quarter: 2022Q3

REPORT INFORMATION
  Report Type: Spontaneous
  Country: FR (occurrence: FR)
  Receive Date: 20200103
  Receipt Date: 20220810
  Transmission Date: 20221026
  Serious: Yes (Hospitalization, Other)
  Sender: FDA-Public Use
  Company Number: FR-AUROBINDO-AUR-APL-2019-107097

PATIENT
  Age: 85 Year
  Sex: Female
  Weight: 58 kg

DRUGS (2)
  1. ALENDRONIC ACID [Suspect]
     Active Substance: ALENDRONIC ACID
     Indication: Osteoporosis
     Dosage: 70 MILLIGRAM, EVERY WEEK
     Route: 065
     Dates: start: 2007
  2. FOSAVANCE [Suspect]
     Active Substance: ALENDRONATE SODIUM\CHOLECALCIFEROL
     Indication: Osteoporosis
     Dosage: 70 MILLIGRAM
     Route: 065
     Dates: start: 2007, end: 2017

REACTIONS (6)
  - Atypical femur fracture [Recovered/Resolved]
  - Fall [Recovered/Resolved]
  - Femur fracture [Unknown]
  - Pain in extremity [Unknown]
  - Blood 25-hydroxycholecalciferol decreased [Unknown]
  - Arthralgia [Unknown]

NARRATIVE: CASE EVENT DATE: 20170118
